FAERS Safety Report 19676903 (Version 4)
Quarter: 2021Q3

REPORT INFORMATION
  Report Type: Spontaneous
  Country: US (occurrence: US)
  Receive Date: 20210810
  Receipt Date: 20210823
  Transmission Date: 20211014
  Serious: No
  Sender: FDA-Public Use
  Company Number: US-AMGEN-USASP2021121845

PATIENT
  Age: 68 Year
  Sex: Male

DRUGS (2)
  1. NEULASTA [Suspect]
     Active Substance: PEGFILGRASTIM
     Indication: OFF LABEL USE
  2. NEULASTA [Suspect]
     Active Substance: PEGFILGRASTIM
     Indication: SQUAMOUS CELL CARCINOMA
     Dosage: UNK
     Route: 065

REACTIONS (2)
  - Device adhesion issue [Unknown]
  - Off label use [Unknown]

NARRATIVE: CASE EVENT DATE: 20210801
